FAERS Safety Report 7235232-0 (Version None)
Quarter: 2011Q1

REPORT INFORMATION
  Report Type: 
  Country: None (occurrence: None)
  Receive Date: 20110120
  Receipt Date: 20110113
  Transmission Date: 20110831
  Serious: Yes (Other)
  Sender: FDA-Public Use
  Company Number: PT-JNJFOC-20110102075

PATIENT
  Sex: Female

DRUGS (5)
  1. RITONAVIR [Concomitant]
     Indication: HIV INFECTION
     Route: 048
  2. PREZISTA [Suspect]
     Indication: HIV INFECTION
     Route: 048
     Dates: start: 20101227
  3. DIDANOSINE [Concomitant]
     Indication: HIV INFECTION
  4. INTELENCE [Suspect]
     Indication: HIV INFECTION
     Route: 048
     Dates: start: 20101227, end: 20110107
  5. TENOFOVIR [Concomitant]
     Indication: HIV INFECTION

REACTIONS (3)
  - RASH GENERALISED [None]
  - DIZZINESS [None]
  - MALAISE [None]
